FAERS Safety Report 6906166-3 (Version None)
Quarter: 2010Q3

REPORT INFORMATION
  Report Type: 
  Country: None (occurrence: None)
  Receive Date: 20100803
  Receipt Date: 20100803
  Transmission Date: 20110219
  Serious: Yes (Hospitalization)
  Sender: FDA-Public Use
  Company Number: None

PATIENT
  Age: 49 Year
  Sex: Male
  Weight: 81.6475 kg

DRUGS (3)
  1. ISENTRESS [Suspect]
     Indication: HIV INFECTION
     Dosage: 400 MG 1 TAB BID PO
     Route: 048
     Dates: start: 20090316, end: 20100802
  2. REYATAZ 400 MG ATAZANAVIR [Suspect]
     Indication: HIV INFECTION
     Dosage: 200 MG 2 TAB QD PO
     Route: 048
     Dates: start: 20090316, end: 20100802
  3. LIPITOR [Concomitant]

REACTIONS (3)
  - BONE GRAFT [None]
  - JOINT DISLOCATION [None]
  - LIGAMENT RUPTURE [None]
